FAERS Safety Report 7191657-3 (Version None)
Quarter: 2010Q4

REPORT INFORMATION
  Report Type: 
  Country: None (occurrence: None)
  Receive Date: 20101221
  Receipt Date: 20101221
  Transmission Date: 20110411
  Serious: Yes (Hospitalization)
  Sender: FDA-Public Use
  Company Number: None

PATIENT
  Age: 53 Year
  Sex: Female

DRUGS (2)
  1. LISINOPRIL [Suspect]
     Indication: HYPERTENSION
     Dosage: 40MG DAILY PO
     Route: 048
     Dates: start: 20100703, end: 20101116
  2. HALOPERIDOL [Suspect]
     Indication: SCHIZOAFFECTIVE DISORDER
     Dosage: 5MG TID PO
     Route: 048
     Dates: start: 20101103

REACTIONS (5)
  - DYSARTHRIA [None]
  - DYSPHAGIA [None]
  - MUSCULAR WEAKNESS [None]
  - SWELLING FACE [None]
  - VIITH NERVE PARALYSIS [None]
